FAERS Safety Report 6141683-8 (Version None)
Quarter: 2009Q2

REPORT INFORMATION
  Report Type: 
  Country: None (occurrence: None)
  Receive Date: 20090402
  Receipt Date: 20090326
  Transmission Date: 20091009
  Serious: Yes (Hospitalization)
  Sender: FDA-Public Use
  Company Number: US-ELI_LILLY_AND_COMPANY-US200903006674

PATIENT
  Sex: Male

DRUGS (3)
  1. HUMALOG [Suspect]
     Indication: TYPE 2 DIABETES MELLITUS
     Dosage: 40 U, DAILY (1/D)
     Dates: start: 19990101
  2. HUMULIN N [Suspect]
     Indication: TYPE 2 DIABETES MELLITUS
     Dosage: 100 U, DAILY (1/D)
     Dates: start: 19990101
  3. FOSAMAX [Concomitant]
     Indication: OSTEOPOROSIS PROPHYLAXIS
     Dosage: UNK, WEEKLY (1/W)
     Dates: start: 19990901

REACTIONS (1)
  - COLITIS [None]
